FAERS Safety Report 14642421 (Version 1)
Quarter: 2018Q1

REPORT INFORMATION
  Report Type: Spontaneous
  Country: GB (occurrence: GB)
  Receive Date: 20180315
  Receipt Date: 20180315
  Transmission Date: 20180509
  Serious: Yes (Other)
  Sender: FDA-Public Use
  Company Number: GB-SA-2018SA073222

PATIENT
  Age: 72 Year
  Sex: Male
  Weight: 117.42 kg

DRUGS (12)
  1. MAXITRAM SR [Concomitant]
     Active Substance: TRAMADOL HYDROCHLORIDE
  2. ETANERCEPT [Concomitant]
     Active Substance: ETANERCEPT
  3. TAMSULOSIN [Concomitant]
     Active Substance: TAMSULOSIN
  4. ACETYLSALICYLIC ACID [Concomitant]
     Active Substance: ASPIRIN
  5. TOUJEO [Suspect]
     Active Substance: INSULIN GLARGINE
     Indication: DIABETES MELLITUS
     Route: 058
     Dates: start: 20180108, end: 20180108
  6. METHENAMINE [Concomitant]
     Active Substance: METHENAMINE
  7. LAXIDO [Concomitant]
     Active Substance: POLYETHYLENE GLYCOL 3350\POTASSIUM CHLORIDE\SODIUM BICARBONATE\SODIUM CHLORIDE
  8. SOLOSTAR [Suspect]
     Active Substance: DEVICE
     Indication: DIABETES MELLITUS
     Dates: start: 20180108, end: 20180108
  9. RANOLAZINE. [Concomitant]
     Active Substance: RANOLAZINE
  10. CYANOCOBALAMIN. [Concomitant]
     Active Substance: CYANOCOBALAMIN
  11. ATORVASTATIN [Concomitant]
     Active Substance: ATORVASTATIN
  12. TRAMADOL. [Concomitant]
     Active Substance: TRAMADOL

REACTIONS (6)
  - Insomnia [Recovering/Resolving]
  - Palatal swelling [Recovering/Resolving]
  - Sensitivity of teeth [Recovering/Resolving]
  - Nausea [Recovering/Resolving]
  - Angioedema [Recovering/Resolving]
  - Malaise [Recovering/Resolving]

NARRATIVE: CASE EVENT DATE: 20180108
